FAERS Safety Report 7360578-5 (Version None)
Quarter: 2011Q1

REPORT INFORMATION
  Report Type: 
  Country: None (occurrence: None)
  Receive Date: 20110309
  Receipt Date: 20110221
  Transmission Date: 20110831
  Serious: Yes (Hospitalization)
  Sender: FDA-Public Use
  Company Number: 2011MA001237

PATIENT
  Age: 58 Year
  Sex: Male

DRUGS (2)
  1. SIBUTRAMINE (SIBUTRAMINE) [Suspect]
     Indication: WEIGHT CONTROL
     Dosage: 15 MG, QD, PO
     Route: 048
  2. FLUOXETINE ORAL SOLUTION USP, 20MG/5ML (ALPHARMA) (FLUOXETINE) [Suspect]
     Indication: AGORAPHOBIA
     Dosage: 120 MG, QD, PO
     Route: 048

REACTIONS (5)
  - DRUG INTERACTION [None]
  - SLEEP DISORDER [None]
  - CONDITION AGGRAVATED [None]
  - SEROTONIN SYNDROME [None]
  - PANIC DISORDER [None]
